FAERS Safety Report 5961719-4 (Version None)
Quarter: 2008Q4

REPORT INFORMATION
  Report Type: 
  Country: None (occurrence: None)
  Receive Date: 20081121
  Receipt Date: 20081114
  Transmission Date: 20090506
  Serious: Yes (Other)
  Sender: FDA-Public Use
  Company Number: US-ASTRAZENECA-2008UW25505

PATIENT
  Age: 62 Year
  Sex: Female
  Weight: 69.1 kg

DRUGS (15)
  1. TOPROL-XL [Suspect]
     Route: 048
     Dates: end: 20080101
  2. TOPROL-XL [Suspect]
     Route: 048
     Dates: start: 20080903
  3. LYRICA [Suspect]
     Indication: NEUROPATHY PERIPHERAL
     Route: 048
     Dates: start: 20080801
  4. LYRICA [Suspect]
     Indication: NEURALGIA
     Route: 048
     Dates: start: 20080801
  5. LYRICA [Suspect]
     Route: 048
     Dates: start: 20080101
  6. LYRICA [Suspect]
     Route: 048
     Dates: start: 20080101
  7. HYDROCODONE BITARTRATE [Concomitant]
  8. LORAZEPAM [Concomitant]
  9. CELEBREX [Concomitant]
  10. NEXIUM [Concomitant]
     Route: 048
  11. ACETYLSALICYLIC ACID SRT [Concomitant]
  12. CRESTOR [Concomitant]
     Route: 048
  13. QUINAPRIL [Concomitant]
  14. SYNTHROID [Concomitant]
  15. CENTRUM SILVER [Concomitant]

REACTIONS (5)
  - FALL [None]
  - GAIT DISTURBANCE [None]
  - MYOCARDIAL INFARCTION [None]
  - PSYCHOTIC DISORDER [None]
  - VISION BLURRED [None]
